FAERS Safety Report 5079958-6 (Version None)
Quarter: 2006Q3

REPORT INFORMATION
  Report Type: 
  Country: None (occurrence: None)
  Receive Date: 20060815
  Receipt Date: 20060504
  Transmission Date: 20061208
  Serious: No
  Sender: FDA-Public Use
  Company Number: US-GLAXOSMITHKLINE-A0604383A

PATIENT
  Age: 28 Year
  Sex: Male

DRUGS (3)
  1. EPZICOM [Suspect]
     Indication: HIV INFECTION
     Dosage: 1TAB PER DAY
     Route: 048
     Dates: start: 20060503
  2. KALETRA [Concomitant]
  3. MEPRON [Concomitant]

REACTIONS (2)
  - DIARRHOEA [None]
  - DYSGEUSIA [None]
